FAERS Safety Report 7350823-4 (Version None)
Quarter: 2011Q1

REPORT INFORMATION
  Report Type: 
  Country: None (occurrence: None)
  Receive Date: 20110304
  Receipt Date: 20110215
  Transmission Date: 20110831
  Serious: Yes (Hospitalization, Other)
  Sender: FDA-Public Use
  Company Number: UTC-003010

PATIENT
  Age: 59 Year
  Sex: Female
  Weight: 126.8 kg

DRUGS (4)
  1. DIURETICS (DIURETICS) [Concomitant]
  2. FLUOXETINE [Concomitant]
  3. REMODULIN [Suspect]
     Indication: PULMONARY ARTERIAL HYPERTENSION
     Dosage: 24.48 UG/KG (0.017 UG/KG,1 IN 1 MIN), INTRAVENOUS
     Route: 042
     Dates: start: 20101105, end: 20110201
  4. ADCIRA (TADALAFIL) [Concomitant]

REACTIONS (5)
  - NAUSEA [None]
  - HAEMOGLOBIN DECREASED [None]
  - CELLULITIS [None]
  - HEADACHE [None]
  - PANCYTOPENIA [None]
